FAERS Safety Report 23485141 (Version 1)
Quarter: 2024Q1

REPORT INFORMATION
  Report Type: Spontaneous
  Country: US (occurrence: US)
  Receive Date: 20240206
  Receipt Date: 20240206
  Transmission Date: 20240410
  Serious: Yes (Other)
  Sender: FDA-Public Use
  Company Number: US-SA-SAC20240202000822

PATIENT
  Age: 97 Year
  Sex: Male
  Weight: 64 kg

DRUGS (5)
  1. DUPIXENT [Suspect]
     Active Substance: DUPILUMAB
     Indication: Dermatitis atopic
     Dosage: 300 MG, OTHER
     Route: 058
     Dates: start: 20220910
  2. SINGULAIR [Concomitant]
     Active Substance: MONTELUKAST SODIUM
     Dosage: UNK
  3. FERROUS SULFATE [Concomitant]
     Active Substance: FERROUS SULFATE
     Dosage: UNK
  4. IBUPROFEN [Concomitant]
     Active Substance: IBUPROFEN
     Dosage: UNK
  5. ONE A DAY MEN^S [ASCORBIC ACID;CALCIUM;CHROMIUM;FOLIC ACID;MAGNESIUM;P [Concomitant]
     Dosage: UNK

REACTIONS (3)
  - Loss of consciousness [Recovered/Resolved]
  - Cataract [Unknown]
  - Dizziness [Unknown]
